FAERS Safety Report 9939402 (Version 1)
Quarter: 2014Q1

REPORT INFORMATION
  Report Type: Spontaneous
  Country: US (occurrence: US)
  Receive Date: 20140303
  Receipt Date: 20140303
  Transmission Date: 20141002
  Serious: No
  Sender: FDA-Public Use
  Company Number: US-ABBVIE-13P-163-1033460-00

PATIENT
  Age: 69 Year
  Sex: Female

DRUGS (13)
  1. HUMIRA [Suspect]
     Indication: CROHN^S DISEASE
     Route: 058
     Dates: start: 20121001, end: 20121001
  2. HUMIRA [Suspect]
     Route: 058
     Dates: start: 20121015, end: 20121015
  3. HUMIRA [Suspect]
     Route: 058
     Dates: start: 20121029
  4. MOBIC [Concomitant]
     Indication: PAIN
     Dosage: 1 TAB DAILY
  5. NORVASC [Concomitant]
     Indication: HYPERTENSION
     Dosage: 1 TAB DAILY
  6. LIALDA [Concomitant]
     Indication: CROHN^S DISEASE
     Dosage: 4 TABS DAILY
  7. ENTOCORT [Concomitant]
     Indication: CROHN^S DISEASE
     Dosage: 3 TABS DAILY
  8. CALTRATE +D [Concomitant]
     Indication: PRODUCT USED FOR UNKNOWN INDICATION
  9. GLUCOSAMINE [Concomitant]
     Indication: PRODUCT USED FOR UNKNOWN INDICATION
  10. CARDIOTEC [Concomitant]
     Indication: PRODUCT USED FOR UNKNOWN INDICATION
     Dosage: 1 CAPSULE IN THE MORNING, 1 CAPSULE AT LUNCH
  11. CARDIO [Concomitant]
     Indication: PRODUCT USED FOR UNKNOWN INDICATION
     Dosage: 1 TAB DAILY
  12. VITAMIN D3 [Concomitant]
     Indication: VITAMIN D DEFICIENCY
     Dosage: 2 TABS DAILY
  13. MACUTAB [Concomitant]
     Indication: MACULAR DEGENERATION
     Dosage: 2 TABS IN THE MORNING AND 2 AT LUNCH

REACTIONS (1)
  - Dysphonia [Recovering/Resolving]
